FAERS Safety Report 5895657-2 (Version None)
Quarter: 2008Q3

REPORT INFORMATION
  Report Type: 
  Country: None (occurrence: None)
  Receive Date: 20080924
  Receipt Date: 20070726
  Transmission Date: 20090109
  Serious: No
  Sender: FDA-Public Use
  Company Number: US-BAYER-200712490BWH

PATIENT
  Age: 43 Year
  Sex: Male

DRUGS (7)
  1. CIPRO [Suspect]
     Indication: PROSTATE INFECTION
  2. PEGASYS [Suspect]
     Indication: HEPATITIS C
     Route: 058
     Dates: start: 20070511
  3. RIBAVIRIN [Suspect]
     Indication: HEPATITIS C
     Dates: start: 20070511
  4. BOTANICAL [Concomitant]
  5. MULTI-VITAMIN [Concomitant]
  6. COENZYME Q10 [Concomitant]
  7. TYLENOL (CAPLET) [Concomitant]

REACTIONS (13)
  - ANXIETY [None]
  - BACK PAIN [None]
  - CANDIDIASIS [None]
  - DYSGEUSIA [None]
  - FATIGUE [None]
  - FOOD CRAVING [None]
  - GLOSSODYNIA [None]
  - INCREASED APPETITE [None]
  - INSOMNIA [None]
  - MUSCLE SPASMS [None]
  - MYALGIA [None]
  - PERIHEPATIC DISCOMFORT [None]
  - TONGUE DISCOLOURATION [None]
